FAERS Safety Report 18249640 (Version 1)
Quarter: 2020Q3

REPORT INFORMATION
  Report Type: Spontaneous
  Country: SA (occurrence: SA)
  Receive Date: 20200909
  Receipt Date: 20200909
  Transmission Date: 20201103
  Serious: Yes (Other)
  Sender: FDA-Public Use
  Company Number: SA-BAYER-2020-185675

PATIENT
  Age: 65 Year
  Sex: Female

DRUGS (7)
  1. CIPROBAY 500 MG [Interacting]
     Active Substance: CIPROFLOXACIN
     Indication: URINARY TRACT INFECTION
  2. CIPROBAY 500 MG [Suspect]
     Active Substance: CIPROFLOXACIN
     Indication: MICTURITION URGENCY
     Dosage: 500 MG, BID
  3. ATORVASTATIN [Interacting]
     Active Substance: ATORVASTATIN
     Indication: CORONARY ARTERY DISEASE
     Dosage: 80 MG, QD
  4. TICAGRELOR. [Concomitant]
     Active Substance: TICAGRELOR
     Indication: CORONARY ARTERY DISEASE
     Dosage: 90 MG, BID
  5. ASPIRIN [ACETYLSALICYLIC ACID] [Concomitant]
     Active Substance: ASPIRIN
     Dosage: 81 MG, QD
  6. PERINDOPRIL [Concomitant]
     Active Substance: PERINDOPRIL
     Indication: CORONARY ARTERY DISEASE
     Dosage: 5 MG, QD
  7. BISOPROLOL [Concomitant]
     Active Substance: BISOPROLOL
     Indication: CORONARY ARTERY DISEASE
     Dosage: 5 MG, BID

REACTIONS (9)
  - Myopathy [Recovered/Resolved]
  - Balance disorder [Recovered/Resolved]
  - Insomnia [Recovered/Resolved]
  - Face injury [Recovered/Resolved]
  - Restlessness [Recovered/Resolved]
  - Fall [Recovered/Resolved]
  - Limb injury [Recovered/Resolved]
  - Drug interaction [Recovered/Resolved]
  - Agitation [Recovered/Resolved]
